FAERS Safety Report 10378568 (Version 2)
Quarter: 2014Q3

REPORT INFORMATION
  Report Type: Spontaneous
  Country: US (occurrence: None)
  Receive Date: 20140804
  Receipt Date: 20140804
  Transmission Date: 20150326
  Serious: Yes (Death, Life-Threatening, Hospitalization)
  Sender: FDA-Public Use
  Company Number: 1713747-2013-99937

PATIENT

DRUGS (6)
  1. 0.9% SODIUM CHLORIDE INJECTION, USP IN MINI-BAG PLUS CONTAINER [Suspect]
     Active Substance: SODIUM CHLORIDE
     Indication: FLUID REPLACEMENT
     Dosage: IV (42)
     Route: 042
     Dates: start: 201307
  2. FRESENIUS COLLECTIVE CONCENTRATE-NATURALYTE [Concomitant]
  3. FRESENIUS DIALYZER [Concomitant]
  4. FRESENIUS 2008K MACHINE [Concomitant]
  5. FRESENIUS COMBISET [Concomitant]
  6. FRESENIUS NORMAL SALINE [Concomitant]

REACTIONS (2)
  - Malaise [None]
  - Adverse event [None]

NARRATIVE: CASE EVENT DATE: 201307
